FAERS Safety Report 5032581-1 (Version None)
Quarter: 2006Q2

REPORT INFORMATION
  Report Type: 
  Country: None (occurrence: None)
  Receive Date: 20060622
  Receipt Date: 20060609
  Transmission Date: 20061013
  Serious: Yes (Hospitalization, Other)
  Sender: FDA-Public Use
  Company Number: PHBS2006JP08779

PATIENT
  Age: 83 Year
  Sex: Male

DRUGS (3)
  1. DIOVAN [Suspect]
     Indication: HYPERTENSION
     Dosage: 20 MG/DAY
     Route: 048
     Dates: start: 20060425, end: 20060528
  2. TAKEPRON [Suspect]
     Dosage: 30 MG/DAY
     Route: 048
     Dates: start: 20060422, end: 20060528
  3. ONEALFA [Suspect]
     Indication: COMPRESSION FRACTURE
     Dosage: 1.0 UG/DAY
     Route: 048
     Dates: end: 20060528

REACTIONS (1)
  - AGRANULOCYTOSIS [None]
